FAERS Safety Report 8603632-X (Version None)
Quarter: 2012Q3

REPORT INFORMATION
  Report Type: 
  Country: None (occurrence: None)
  Receive Date: 20120817
  Receipt Date: 20120807
  Transmission Date: 20120928
  Serious: Yes (Hospitalization)
  Sender: FDA-Public Use
  Company Number: CN-B.I. PHARMACEUTICALS,INC./RIDGEFIELD-2012-BP-19321BP

PATIENT
  Sex: Male
  Weight: 52 kg

DRUGS (4)
  1. FLUPENTIXOL+MELITRACEN [Suspect]
     Indication: INSOMNIA
     Dosage: 20 MG
     Route: 048
     Dates: start: 20101230, end: 20110106
  2. BUFFERED PHYSIOLOGICAL SALINE [Concomitant]
     Indication: DYSPNOEA
     Dosage: 10 ML
     Route: 055
     Dates: start: 20110102, end: 20110102
  3. IPRATROPIUM BROMIDE [Suspect]
     Indication: DYSPNOEA
     Dosage: 2 ML
     Route: 055
     Dates: start: 20110102, end: 20110102
  4. DIAZEPAM [Suspect]
     Indication: INSOMNIA
     Dosage: 5 MG
     Route: 048
     Dates: start: 20101227, end: 20110106

REACTIONS (1)
  - MENTAL DISORDER [None]
